FAERS Safety Report 6232630-9 (Version None)
Quarter: 2009Q2

REPORT INFORMATION
  Report Type: 
  Country: None (occurrence: None)
  Receive Date: 20090615
  Receipt Date: 20090605
  Transmission Date: 20091009
  Serious: Yes (Hospitalization)
  Sender: FDA-Public Use
  Company Number: 2009-02216

PATIENT
  Age: 66 Year
  Sex: Female
  Weight: 85.3 kg

DRUGS (9)
  1. VELCADE [Suspect]
     Indication: MULTIPLE MYELOMA
     Dosage: 1.3 MG/M2, UNK, IV BOLUS
     Route: 040
     Dates: start: 20081202, end: 20090508
  2. DEXAMETHASONE TAB [Suspect]
     Indication: MULTIPLE MYELOMA
     Dosage: 40 MG, UNK, ORAL
     Route: 048
     Dates: start: 20081202, end: 20090512
  3. DICLOFENAC (DICLOFENAC) [Concomitant]
  4. FENTANYL-100 [Concomitant]
  5. HYDROCHLOROTHIAZIDE [Concomitant]
  6. LEVAQUIN [Concomitant]
  7. RANITIDINE [Concomitant]
  8. TENORMIN [Concomitant]
  9. ZOVIRAX [Concomitant]

REACTIONS (4)
  - ARRHYTHMIA SUPRAVENTRICULAR [None]
  - ATRIAL FIBRILLATION [None]
  - HAEMOGLOBIN DECREASED [None]
  - NODAL ARRHYTHMIA [None]
